FAERS Safety Report 12365330 (Version 1)
Quarter: 2016Q2

REPORT INFORMATION
  Report Type: Report from Study
  Country: US (occurrence: US)
  Receive Date: 20160512
  Receipt Date: 20160512
  Transmission Date: 20160815
  Serious: No
  Sender: FDA-Public Use
  Company Number: US-AMGEN-USASL2016060080

PATIENT
  Age: 64 Year
  Sex: Male

DRUGS (2)
  1. ENBREL [Suspect]
     Active Substance: ETANERCEPT
     Indication: PSORIATIC ARTHROPATHY
  2. ENBREL [Suspect]
     Active Substance: ETANERCEPT
     Indication: RHEUMATOID ARTHRITIS
     Dosage: 50 MG, QWK
     Route: 065
     Dates: start: 2014

REACTIONS (8)
  - Oral infection [Recovered/Resolved]
  - Ankle fracture [Unknown]
  - White blood cell count increased [Unknown]
  - Hypersensitivity [Unknown]
  - Tooth infection [Recovered/Resolved]
  - Sinusitis [Recovered/Resolved]
  - Fall [Unknown]
  - Sinus disorder [Unknown]

NARRATIVE: CASE EVENT DATE: 201508
